FAERS Safety Report 8540276 (Version 5)
Quarter: 2013Q1

REPORT INFORMATION
  Report Type: Spontaneous
  Country: US (occurrence: US)
  Receive Date: 20120502
  Receipt Date: 20130315
  Transmission Date: 20140127
  Serious: Yes (Congenital Anomaly, Other)
  Sender: FDA-Public Use
  Company Number: US-PFIZER INC-2012106216

PATIENT
  Sex: Male
  Weight: 3.1 kg

DRUGS (16)
  1. ZOLOFT [Suspect]
     Indication: DEPRESSION
     Dosage: UNK
     Route: 064
     Dates: start: 2005
  2. ZOLOFT [Suspect]
     Dosage: UNK
     Route: 064
     Dates: start: 2006
  3. PRENATAL VITAMINS [Concomitant]
     Dosage: UNK
     Route: 064
  4. FLONASE [Concomitant]
     Dosage: UNK
     Route: 064
  5. PREDNISONE [Concomitant]
     Dosage: 20 MG, 1X/DAY
     Route: 064
  6. HYDROCODONE/ACETAMINOPHEN [Concomitant]
     Dosage: UNK
     Route: 064
  7. FLAGYL [Concomitant]
     Dosage: UNK
     Route: 064
  8. AZITHROMYCIN [Concomitant]
     Dosage: UNK
     Route: 064
  9. TERCONAZOLE [Concomitant]
     Dosage: UNK
     Route: 064
  10. DIFLUCAN [Concomitant]
     Dosage: UNK
     Route: 064
  11. NYSTATIN [Concomitant]
     Dosage: TWICE DAILY
     Route: 064
  12. CUTIVATE [Concomitant]
     Dosage: TWICE DAILY
     Route: 064
  13. CENOGEN ULTRA [Concomitant]
     Dosage: ONCE DAILY
     Route: 064
     Dates: start: 20060303
  14. LORTAB [Concomitant]
     Dosage: 7.5 MG, UNK
     Route: 064
     Dates: start: 20060610
  15. KEFLEX [Concomitant]
     Dosage: 500 MG, 2X/DAY
     Route: 064
     Dates: start: 20060610
  16. METROGEL [Concomitant]
     Dosage: UNK
     Route: 064
     Dates: start: 20060610

REACTIONS (2)
  - Maternal exposure timing unspecified [Unknown]
  - Talipes [Unknown]
